FAERS Safety Report 18975360 (Version 1)
Quarter: 2021Q1

REPORT INFORMATION
  Report Type: Spontaneous
  Country: MX (occurrence: MX)
  Receive Date: 20210305
  Receipt Date: 20210305
  Transmission Date: 20210420
  Serious: Yes (Other)
  Sender: FDA-Public Use
  Company Number: MX-DSJP-DSU-2021-106581

PATIENT
  Sex: Female
  Weight: 58 kg

DRUGS (1)
  1. DUOALMETEC [Suspect]
     Active Substance: AMLODIPINE BESYLATE\OLMESARTAN MEDOXOMIL
     Indication: BLOOD PRESSURE ABNORMAL
     Dosage: 20/5 MG,1 TABLET IN THE MORNING AND ONE TABLET
     Route: 048

REACTIONS (6)
  - Rheumatoid arthritis [Unknown]
  - Product availability issue [Unknown]
  - Blood triglycerides abnormal [Unknown]
  - Product dose omission issue [Unknown]
  - Gastritis [Unknown]
  - Thyroid disorder [Unknown]
